FAERS Safety Report 19772139 (Version 2)
Quarter: 2021Q3

REPORT INFORMATION
  Report Type: Spontaneous
  Country: US (occurrence: US)
  Receive Date: 20210831
  Receipt Date: 20210831
  Transmission Date: 20211014
  Serious: No
  Sender: FDA-Public Use
  Company Number: US-LUPIN PHARMACEUTICALS INC.-2021-16045

PATIENT
  Age: 35 Year
  Sex: Female

DRUGS (1)
  1. CEFTRIAXONE. [Suspect]
     Active Substance: CEFTRIAXONE
     Indication: SEPSIS
     Dosage: RECEIVED IV PUSH OF CEFTRIAXONE. CEFTRIAXONE CONCENTRATION WAS 1G/10ML VIALS, WHICH WAS RECONSTITUTE
     Route: 042
     Dates: start: 2018

REACTIONS (1)
  - Vomiting [Unknown]

NARRATIVE: CASE EVENT DATE: 2018
